FAERS Safety Report 19473648 (Version 1)
Quarter: 2021Q2

REPORT INFORMATION
  Report Type: Report from Study
  Country: CA (occurrence: CA)
  Receive Date: 20210629
  Receipt Date: 20210629
  Transmission Date: 20210717
  Serious: Yes (Other)
  Sender: FDA-Public Use
  Company Number: CA-EMD SERONO-9243695

PATIENT
  Age: 81 Year
  Sex: Female

DRUGS (2)
  1. BAVENCIO [Suspect]
     Active Substance: AVELUMAB
     Indication: PRODUCT USED FOR UNKNOWN INDICATION
     Dosage: 603 MG
     Route: 042
     Dates: start: 20210507
  2. BAVENCIO [Suspect]
     Active Substance: AVELUMAB
     Dosage: 603 MG
     Route: 042
     Dates: start: 20210521

REACTIONS (1)
  - Thrombocytopenia [Not Recovered/Not Resolved]

NARRATIVE: CASE EVENT DATE: 2021
